FAERS Safety Report 14838148 (Version 4)
Quarter: 2018Q3

REPORT INFORMATION
  Report Type: Spontaneous
  Country: US (occurrence: US)
  Receive Date: 20180502
  Receipt Date: 20180824
  Transmission Date: 20181010
  Serious: Yes (Hospitalization)
  Sender: FDA-Public Use
  Company Number: US-ELI_LILLY_AND_COMPANY-US201804011081

PATIENT
  Sex: Male
  Weight: 99.77 kg

DRUGS (2)
  1. TALTZ [Suspect]
     Active Substance: IXEKIZUMAB
     Indication: ERYTHRODERMIC PSORIASIS
     Dosage: 80 MG, 2/M
     Route: 058
     Dates: start: 20171212, end: 20180319
  2. TALTZ [Suspect]
     Active Substance: IXEKIZUMAB
     Dosage: UNK, UNKNOWN
     Route: 065
     Dates: start: 20180515

REACTIONS (3)
  - Rhabdomyolysis [Recovered/Resolved]
  - Thrombosis [Unknown]
  - Pancreatitis [Unknown]
